FAERS Safety Report 8228633-5 (Version None)
Quarter: 2012Q1

REPORT INFORMATION
  Report Type: 
  Country: None (occurrence: None)
  Receive Date: 20120322
  Receipt Date: 20110407
  Transmission Date: 20120608
  Serious: Yes (Other)
  Sender: FDA-Public Use
  Company Number: US-BRISTOL-MYERS SQUIBB COMPANY-15564164

PATIENT
  Age: 83 Year
  Sex: Female

DRUGS (1)
  1. ERBITUX [Suspect]
     Indication: RECTAL CANCER
     Dosage: 5-6 CYCLES

REACTIONS (7)
  - DEPRESSION [None]
  - DYSKINESIA [None]
  - BREAST PAIN [None]
  - AGITATION [None]
  - HYPOAESTHESIA [None]
  - PSYCHOMOTOR HYPERACTIVITY [None]
  - ANXIETY [None]
